FAERS Safety Report 8936501 (Version 1)
Quarter: 2012Q4

REPORT INFORMATION
  Report Type: 
  Country: US (occurrence: US)
  Receive Date: 20121130
  Receipt Date: 20121130
  Transmission Date: 20130627
  Serious: Yes (Other)
  Sender: FDA-Public Use
  Company Number: US-NOVOPROD-365014

PATIENT
  Age: 71 Year
  Sex: Female
  Weight: 79.37 kg

DRUGS (1)
  1. VICTOZA [Suspect]
     Indication: TYPE 2 DIABETES MELLITUS
     Dosage: UNK
     Route: 058
     Dates: start: 20110602

REACTIONS (1)
  - Renal artery stenosis [Not Recovered/Not Resolved]
